FAERS Safety Report 7513912-7 (Version None)
Quarter: 2011Q2

REPORT INFORMATION
  Report Type: 
  Country: None (occurrence: None)
  Receive Date: 20110531
  Receipt Date: 20110523
  Transmission Date: 20111010
  Serious: Yes (Other)
  Sender: FDA-Public Use
  Company Number: PHHY2011AU42908

PATIENT
  Sex: Male

DRUGS (11)
  1. CEFAZOLIN [Suspect]
     Dosage: 2 G, UNK
     Dates: start: 20100615, end: 20100615
  2. THIOPENTAL SODIUM [Suspect]
     Dosage: 250 MG, UNK
     Dates: start: 20100615, end: 20100615
  3. NOREPINEPHRINE BITARTRATE [Suspect]
     Dosage: UNK
     Dates: start: 20100615
  4. TRANEXAMIC ACID [Suspect]
     Dosage: 5 MG, UNK
     Dates: start: 20100615, end: 20100615
  5. FENTANYL [Suspect]
     Dosage: 1500 UG, UNK
     Dates: start: 20100615
  6. HEPARIN CALCIUM [Suspect]
     Dosage: 25000 IU, UNK
     Dates: start: 20100615, end: 20100615
  7. METOPROLOL SUCCINATE [Suspect]
     Dosage: 4 MG, UNK
     Dates: start: 20100615, end: 20100615
  8. PANCURONIUM BROMIDE [Suspect]
     Dosage: 8 MG, UNK
     Dates: start: 20100615, end: 20100615
  9. MIDAZOLAM HCL [Suspect]
     Dosage: 2 MG, UNK
     Dates: start: 20100615, end: 20100615
  10. PROPOFOL [Suspect]
     Dosage: 20 MG/H, UNK
     Dates: start: 20100615
  11. PROTAMINE SULFATE [Suspect]
     Dosage: 350 MG, UNK
     Dates: start: 20100615, end: 20100615

REACTIONS (1)
  - CONVULSION [None]
